FAERS Safety Report 5922009-9 (Version None)
Quarter: 2008Q4

REPORT INFORMATION
  Report Type: 
  Country: None (occurrence: None)
  Receive Date: 20081017
  Receipt Date: 20081009
  Transmission Date: 20090506
  Serious: Yes (Hospitalization)
  Sender: FDA-Public Use
  Company Number: A0751135A

PATIENT
  Sex: Female

DRUGS (3)
  1. ZOFRAN [Suspect]
     Indication: NAUSEA
     Dosage: 8MG THREE TIMES PER DAY
     Route: 048
  2. FLINTSTONE VITAMINS [Concomitant]
  3. IRON SUPPLEMENT [Concomitant]

REACTIONS (3)
  - DEHYDRATION [None]
  - DRUG EXPOSURE DURING PREGNANCY [None]
  - DRUG INEFFECTIVE [None]
